FAERS Safety Report 24214104 (Version 1)
Quarter: 2024Q3

REPORT INFORMATION
  Report Type: Spontaneous
  Country: US (occurrence: None)
  Receive Date: 20240815
  Receipt Date: 20240815
  Transmission Date: 20241017
  Serious: Yes (Other)
  Sender: Public
  Company Number: None

PATIENT
  Age: 47 Year
  Sex: Male

DRUGS (2)
  1. SYMTUZA [Suspect]
     Active Substance: COBICISTAT\DARUNAVIR\EMTRICITABINE\TENOFOVIR ALAFENAMIDE
     Indication: HIV infection
     Dosage: 1 TABLET  DAILY ORAL
     Route: 048
     Dates: start: 20230112, end: 20240619
  2. TIVICAY [Suspect]
     Active Substance: DOLUTEGRAVIR SODIUM
     Indication: HIV infection
     Dosage: 1 TABLET DAILY ORAL
     Route: 048
     Dates: start: 20230112, end: 20240619

REACTIONS (3)
  - Palpitations [None]
  - Diarrhoea [None]
  - Therapy change [None]

NARRATIVE: CASE EVENT DATE: 20240619
